FAERS Safety Report 18427584 (Version 2)
Quarter: 2020Q4

REPORT INFORMATION
  Report Type: Spontaneous
  Country: US (occurrence: US)
  Receive Date: 20201026
  Receipt Date: 20201106
  Transmission Date: 20210114
  Serious: No
  Sender: FDA-Public Use
  Company Number: US-PFIZER INC-2020408402

PATIENT
  Age: 70 Year
  Sex: Female
  Weight: 55.33 kg

DRUGS (2)
  1. XANAX [Suspect]
     Active Substance: ALPRAZOLAM
     Indication: ANXIETY DISORDER
  2. XANAX [Suspect]
     Active Substance: ALPRAZOLAM
     Indication: INSOMNIA
     Dosage: 1 MG, 4X/DAY

REACTIONS (3)
  - Rhinorrhoea [Unknown]
  - Myalgia [Unknown]
  - Paranasal sinus discomfort [Unknown]
